FAERS Safety Report 10395937 (Version 9)
Quarter: 2020Q1

REPORT INFORMATION
  Report Type: Report from Study
  Country: DE (occurrence: DE)
  Receive Date: 20140820
  Receipt Date: 20200303
  Transmission Date: 20200409
  Serious: Yes (Death, Life-Threatening, Hospitalization, Other)
  Sender: FDA-Public Use
  Company Number: DE-INCYTE CORPORATION-2014IN001393

PATIENT

DRUGS (11)
  1. INCB018424 [Suspect]
     Active Substance: RUXOLITINIB
     Indication: MYELOFIBROSIS
     Dosage: 15 MG, BID
     Route: 048
     Dates: start: 20140404, end: 20140416
  2. CARVEDILOL. [Concomitant]
     Active Substance: CARVEDILOL
     Indication: PORTAL HYPERTENSION
  3. PLAVIX [Concomitant]
     Active Substance: CLOPIDOGREL BISULFATE
     Indication: PRODUCT USED FOR UNKNOWN INDICATION
     Dosage: 75 MG, QD (IN THE MORNING)
     Route: 065
     Dates: start: 2014
  4. CETIRIZINE [Concomitant]
     Active Substance: CETIRIZINE HYDROCHLORIDE
     Indication: PRURITUS
     Dosage: 10 MG, QD
     Route: 065
     Dates: start: 20130412
  5. SPIRONOLACTONE. [Concomitant]
     Active Substance: SPIRONOLACTONE
     Indication: PRODUCT USED FOR UNKNOWN INDICATION
     Dosage: 100 MG, QD
     Route: 065
     Dates: start: 20140606
  6. FUROBETA [Concomitant]
     Active Substance: FUROSEMIDE
     Indication: HYPERTENSION
     Dosage: 80 MG, QD
     Route: 065
     Dates: start: 20131213
  7. INCB018424 [Suspect]
     Active Substance: RUXOLITINIB
     Dosage: 15 MG, QD
     Route: 048
     Dates: start: 20140509
  8. INCB018424 [Suspect]
     Active Substance: RUXOLITINIB
     Dosage: 15 MG, BID
     Route: 048
     Dates: start: 20140425, end: 20140508
  9. CARVEDILOL. [Concomitant]
     Active Substance: CARVEDILOL
     Indication: CARDIAC FAILURE
     Dosage: 6.25 MG, BID
     Route: 065
     Dates: start: 20130704
  10. OMEPRAZOLE. [Concomitant]
     Active Substance: OMEPRAZOLE
     Indication: DUODENAL ULCER
     Dosage: 10 MG, QD
     Route: 048
     Dates: start: 20130704, end: 20140417
  11. PANTOZOL [Concomitant]
     Active Substance: PANTOPRAZOLE SODIUM
     Indication: DUODENAL ULCER
     Dosage: 40 MG, QD
     Route: 065
     Dates: start: 20140424

REACTIONS (39)
  - Pupils unequal [Fatal]
  - Liver function test increased [Unknown]
  - Renal function test abnormal [Unknown]
  - Leukocytosis [Unknown]
  - Blood uric acid increased [Recovering/Resolving]
  - General physical health deterioration [Unknown]
  - Constipation [Recovered/Resolved]
  - Abdominal pain upper [Fatal]
  - Mitral valve incompetence [Unknown]
  - Tricuspid valve incompetence [Unknown]
  - Weight increased [Fatal]
  - Oesophageal varices haemorrhage [Fatal]
  - Cardiovascular insufficiency [Fatal]
  - Red blood cell count decreased [Fatal]
  - Breath sounds abnormal [Unknown]
  - Abdominal distension [Fatal]
  - Acidosis [Fatal]
  - Oedema peripheral [Recovered/Resolved]
  - Portal vein flow decreased [Fatal]
  - Splenomegaly [Unknown]
  - Flatulence [Recovered/Resolved]
  - Hyponatraemia [Unknown]
  - Stab wound [Unknown]
  - Abdominal pain [Recovered/Resolved]
  - Varices oesophageal [Fatal]
  - Blood lactate dehydrogenase increased [Unknown]
  - Hypertensive heart disease [Unknown]
  - Malnutrition [Unknown]
  - Respiratory failure [Fatal]
  - Atrioventricular block complete [Unknown]
  - Cardiac failure [Unknown]
  - Diarrhoea [Recovered/Resolved]
  - Waist circumference increased [Fatal]
  - Blood potassium increased [Fatal]
  - Ejection fraction decreased [Unknown]
  - Ascites [Fatal]
  - Haemoglobin decreased [Unknown]
  - Pulmonary congestion [Unknown]
  - Blood urea increased [Recovering/Resolving]

NARRATIVE: CASE EVENT DATE: 20140416
